FAERS Safety Report 7237711-9 (Version None)
Quarter: 2011Q1

REPORT INFORMATION
  Report Type: 
  Country: None (occurrence: None)
  Receive Date: 20110121
  Receipt Date: 20110112
  Transmission Date: 20110831
  Serious: Yes (Death, Hospitalization, Other)
  Sender: FDA-Public Use
  Company Number: US-BAXTER-2010BH029650

PATIENT
  Age: 65 Year
  Sex: Female

DRUGS (2)
  1. DIANEAL [Suspect]
     Indication: PERITONEAL DIALYSIS
     Route: 033
     Dates: start: 20101108, end: 20101109
  2. DIANEAL PD-2 W/ DEXTROSE 1.5% [Suspect]
     Indication: PERITONEAL DIALYSIS
     Route: 033
     Dates: start: 20101012, end: 20101109

REACTIONS (12)
  - PERIPHERAL VASCULAR DISORDER [None]
  - FEELING ABNORMAL [None]
  - VOMITING [None]
  - PERITONEAL DIALYSIS COMPLICATION [None]
  - CARDIO-RESPIRATORY ARREST [None]
  - PERITONITIS BACTERIAL [None]
  - BLOOD GLUCOSE DECREASED [None]
  - DEVICE RELATED INFECTION [None]
  - BLOOD PRESSURE DECREASED [None]
  - CARDIAC DISORDER [None]
  - CARDIAC FAILURE [None]
  - NAUSEA [None]
